FAERS Safety Report 23849526 (Version 1)
Quarter: 2024Q2

REPORT INFORMATION
  Report Type: Spontaneous
  Country: US (occurrence: None)
  Receive Date: 20240512
  Receipt Date: 20240512
  Transmission Date: 20240715
  Serious: Yes (Hospitalization)
  Sender: FDA-Public Use
  Company Number: None

PATIENT
  Age: 64 Year
  Sex: Male
  Weight: 94 kg

DRUGS (3)
  1. RIVAROXABAN [Suspect]
     Active Substance: RIVAROXABAN
     Indication: Deep vein thrombosis
     Dosage: FREQUENCY : DAILY;?
     Route: 048
     Dates: start: 20190409
  2. RIVAROXABAN [Suspect]
     Active Substance: RIVAROXABAN
     Indication: Pain
  3. IBUPROFEN [Suspect]
     Active Substance: IBUPROFEN
     Indication: Pain
     Dosage: FREQUENCY : TWICE A DAY;?
     Route: 048
     Dates: start: 20190606, end: 20190615

REACTIONS (1)
  - Gastrointestinal haemorrhage [None]

NARRATIVE: CASE EVENT DATE: 20190615
